FAERS Safety Report 16775837 (Version 1)
Quarter: 2019Q3

REPORT INFORMATION
  Report Type: Spontaneous
  Country: US (occurrence: US)
  Receive Date: 20190905
  Receipt Date: 20190905
  Transmission Date: 20191005
  Serious: Yes (Other)
  Sender: FDA-Public Use
  Company Number: US-PFIZER INC-2019376653

PATIENT
  Age: 45 Year
  Sex: Female
  Weight: 86.12 kg

DRUGS (1)
  1. METHOTREXATE SODIUM. [Suspect]
     Active Substance: METHOTREXATE SODIUM
     Indication: PUSTULAR PSORIASIS
     Dosage: UNK UNK, WEEKLY

REACTIONS (7)
  - Staphylococcal infection [Recovering/Resolving]
  - Abdominal distension [Unknown]
  - Rash pustular [Recovering/Resolving]
  - Pain [Unknown]
  - Therapeutic product effect incomplete [Unknown]
  - Abdominal pain [Unknown]
  - Abdominal discomfort [Unknown]
